FAERS Safety Report 6228804-3 (Version None)
Quarter: 2009Q2

REPORT INFORMATION
  Report Type: 
  Country: None (occurrence: None)
  Receive Date: 20090615
  Receipt Date: 20090608
  Transmission Date: 20091009
  Serious: Yes (Hospitalization, Other)
  Sender: FDA-Public Use
  Company Number: PHEH2009US04548

PATIENT
  Sex: Female
  Weight: 58.957 kg

DRUGS (4)
  1. RECLAST [Suspect]
     Indication: OSTEOPENIA
     Dosage: 5 MG, ONCE YEARLY
     Route: 042
     Dates: start: 20090320, end: 20090320
  2. CALCIUM [Concomitant]
     Dosage: 600 MG BID
     Route: 048
  3. MULTI-VITAMINS [Concomitant]
     Dosage: UNK
     Route: 048
  4. ASPIRIN [Concomitant]
     Dosage: 81 MG, QD
     Route: 048

REACTIONS (6)
  - ACTIVITIES OF DAILY LIVING IMPAIRED [None]
  - APPENDICECTOMY [None]
  - APPENDICITIS [None]
  - ARTHRALGIA [None]
  - BONE PAIN [None]
  - MYALGIA [None]
